FAERS Safety Report 6619223-6 (Version None)
Quarter: 2010Q1

REPORT INFORMATION
  Report Type: 
  Country: None (occurrence: None)
  Receive Date: 20100302
  Receipt Date: 20100218
  Transmission Date: 20100710
  Serious: Yes (Other)
  Sender: FDA-Public Use
  Company Number: DSA_42649_2010

PATIENT
  Sex: Female

DRUGS (13)
  1. XENAZINE [Suspect]
     Indication: MOVEMENT DISORDER
     Dosage: (12.5 MG BID ORAL)
     Route: 048
     Dates: start: 20100108
  2. FLEXERIL [Concomitant]
  3. ATIVAN [Concomitant]
  4. CHLORAL HYDRATE [Concomitant]
  5. MIRAPEX [Concomitant]
  6. MOTRIN [Concomitant]
  7. FLUVOXAMINE MALEATE [Concomitant]
  8. ZANTAC /00550802/ [Concomitant]
  9. FLONASE [Concomitant]
  10. COMBIVENT [Concomitant]
  11. LUNESTA [Concomitant]
  12. ARICEPT /01318902/ [Concomitant]
  13. LITHIUM [Concomitant]

REACTIONS (7)
  - ANXIETY [None]
  - BIPOLAR DISORDER [None]
  - CONDITION AGGRAVATED [None]
  - INSOMNIA [None]
  - OBSESSIVE-COMPULSIVE DISORDER [None]
  - PANIC ATTACK [None]
  - TACHYPHRENIA [None]
